FAERS Safety Report 22112179 (Version 1)
Quarter: 2023Q1

REPORT INFORMATION
  Report Type: Spontaneous
  Country: GB (occurrence: GB)
  Receive Date: 20230318
  Receipt Date: 20230318
  Transmission Date: 20230417
  Serious: Yes (Disabling, Other)
  Sender: FDA-Public Use
  Company Number: None

PATIENT
  Age: 19 Year
  Sex: Male
  Weight: 96 kg

DRUGS (7)
  1. OLANZAPINE [Suspect]
     Active Substance: OLANZAPINE
     Indication: Product used for unknown indication
     Dosage: 20 MG
     Route: 048
     Dates: start: 20220901
  2. ARIPIPRAZOLE [Concomitant]
     Active Substance: ARIPIPRAZOLE
     Indication: Product used for unknown indication
     Dosage: 1 DF
     Route: 065
     Dates: start: 20220901, end: 20230104
  3. DEPAKOTE [Concomitant]
     Active Substance: DIVALPROEX SODIUM
     Indication: Product used for unknown indication
     Dosage: 2 DF
     Route: 065
     Dates: start: 20220901, end: 20230104
  4. INVITA-D3 [Concomitant]
     Indication: Product used for unknown indication
     Dosage: 1 DF
     Route: 065
     Dates: start: 20220901
  5. MIRTAZAPINE [Concomitant]
     Active Substance: MIRTAZAPINE
     Indication: Product used for unknown indication
     Dosage: AT NIGHT
     Route: 065
     Dates: start: 20220901
  6. OMEPRAZOLE [Concomitant]
     Active Substance: OMEPRAZOLE
     Indication: Product used for unknown indication
     Dosage: 1 DF
     Route: 065
     Dates: start: 20220901
  7. THIAMINE [Concomitant]
     Active Substance: THIAMINE
     Indication: Product used for unknown indication
     Dosage: 3 DF
     Route: 065
     Dates: start: 20220901

REACTIONS (4)
  - Tardive dyskinesia [Unknown]
  - Musculoskeletal stiffness [Unknown]
  - Dyskinesia [Unknown]
  - Tongue movement disturbance [Unknown]

NARRATIVE: CASE EVENT DATE: 20230118
